FAERS Safety Report 11776851 (Version 1)
Quarter: 2015Q4

REPORT INFORMATION
  Report Type: Spontaneous
  Country: US (occurrence: US)
  Receive Date: 20151125
  Receipt Date: 20151125
  Transmission Date: 20160304
  Serious: No
  Sender: FDA-Public Use
  Company Number: CHPA2015US013798

PATIENT
  Sex: Male

DRUGS (1)
  1. CLEMASTINE FUMARATE. [Suspect]
     Active Substance: CLEMASTINE FUMARATE
     Indication: ANTIALLERGIC THERAPY
     Route: 048

REACTIONS (2)
  - Abdominal discomfort [Recovered/Resolved]
  - Wrong technique in product usage process [Unknown]
